FAERS Safety Report 5176654-1 (Version None)
Quarter: 2006Q4

REPORT INFORMATION
  Report Type: 
  Country: None (occurrence: None)
  Receive Date: 20061215
  Receipt Date: 20061208
  Transmission Date: 20070319
  Serious: Yes (Death)
  Sender: FDA-Public Use
  Company Number: GB-MERCK-0612GBR00035

PATIENT
  Age: 36 Year
  Sex: Female

DRUGS (2)
  1. METARAMINOL [Suspect]
     Route: 051
  2. [COMPOSITION UNSPECIFIED] [Concomitant]
     Route: 065

REACTIONS (3)
  - DRUG INEFFECTIVE [None]
  - HYPOTENSION [None]
  - PROCEDURAL COMPLICATION [None]
